FAERS Safety Report 8190690-2 (Version None)
Quarter: 2012Q1

REPORT INFORMATION
  Report Type: 
  Country: None (occurrence: None)
  Receive Date: 20120221
  Receipt Date: 20120118
  Transmission Date: 20120608
  Serious: Yes (Other)
  Sender: FDA-Public Use
  Company Number: 1000026291

PATIENT
  Age: 67 Year
  Sex: Female

DRUGS (4)
  1. TRAZODONE (TRAZODONE) (TRAZODONE) [Concomitant]
  2. LAMICTAL [Concomitant]
  3. VIIBRYD [Suspect]
     Indication: DEPRESSION
     Dosage: 40 MG (40 MG,1 IN 1 D),ORAL
     Route: 048
     Dates: start: 20110601
  4. KLONOPIN [Concomitant]

REACTIONS (7)
  - FREQUENT BOWEL MOVEMENTS [None]
  - HEADACHE [None]
  - EYE PAIN [None]
  - ABNORMAL SENSATION IN EYE [None]
  - ABDOMINAL DISTENSION [None]
  - CATARACT [None]
  - NAUSEA [None]
